FAERS Safety Report 20124976 (Version 2)
Quarter: 2021Q4

REPORT INFORMATION
  Report Type: Report from Study
  Country: US (occurrence: US)
  Receive Date: 20211129
  Receipt Date: 20211208
  Transmission Date: 20220303
  Serious: Yes (Hospitalization, Other)
  Sender: FDA-Public Use
  Company Number: US-BRISTOL-MYERS SQUIBB COMPANY-BMS-2021-125849

PATIENT
  Age: 77 Year
  Sex: Male
  Weight: 94.3 kg

DRUGS (2)
  1. NIVOLUMAB [Suspect]
     Active Substance: NIVOLUMAB
     Indication: Bladder squamous cell carcinoma stage unspecified
     Dosage: 3 MILLIGRAM/KILOGRAM, Q4WK
     Route: 042
     Dates: start: 20210416
  2. IPILIMUMAB [Suspect]
     Active Substance: IPILIMUMAB
     Indication: Bladder squamous cell carcinoma stage unspecified
     Dosage: 1 MILLIGRAM/KILOGRAM, Q3WK
     Route: 042
     Dates: start: 20210416, end: 20210618

REACTIONS (1)
  - Kidney infection [Unknown]

NARRATIVE: CASE EVENT DATE: 20211119
